FAERS Safety Report 13940397 (Version 1)
Quarter: 2017Q3

REPORT INFORMATION
  Report Type: Spontaneous
  Country: US (occurrence: US)
  Receive Date: 20170906
  Receipt Date: 20170906
  Transmission Date: 20171127
  Serious: Yes (Hospitalization)
  Sender: FDA-Public Use
  Company Number: US-PFIZER INC-2017382679

PATIENT
  Age: 72 Year
  Sex: Male
  Weight: 82 kg

DRUGS (1)
  1. VFEND [Suspect]
     Active Substance: VORICONAZOLE
     Indication: PULMONARY MASS
     Dosage: 200MG TABLET TWICE A DAY
     Dates: start: 2017

REACTIONS (3)
  - Bone cancer [Unknown]
  - Influenza [Recovering/Resolving]
  - Product use in unapproved indication [Recovering/Resolving]
